FAERS Safety Report 14911773 (Version 3)
Quarter: 2018Q3

REPORT INFORMATION
  Report Type: Report from Study
  Country: DE (occurrence: DE)
  Receive Date: 20180518
  Receipt Date: 20180831
  Transmission Date: 20181010
  Serious: Yes (Hospitalization)
  Sender: FDA-Public Use
  Company Number: DE-ROCHE-2123633

PATIENT
  Age: 63 Year
  Sex: Female
  Weight: 60.4 kg

DRUGS (5)
  1. BEVACIZUMAB. [Suspect]
     Active Substance: BEVACIZUMAB
     Indication: BREAST CANCER
     Dosage: 10 MILLIGRAM/SQ. METER,
     Route: 065
     Dates: start: 20161015, end: 20161205
  2. ABRAXANE [Suspect]
     Active Substance: PACLITAXEL
     Indication: BREAST CANCER
     Dosage: MOST RECENT DOSE ON 05/DEC/2016
     Route: 041
     Dates: start: 20161205
  3. PANTOZOL [Concomitant]
     Active Substance: PANTOPRAZOLE SODIUM
     Indication: PRODUCT USED FOR UNKNOWN INDICATION
     Route: 065
  4. FENTANYL. [Concomitant]
     Active Substance: FENTANYL
     Indication: PRODUCT USED FOR UNKNOWN INDICATION
     Route: 065
  5. IRENAT [Concomitant]
     Active Substance: SODIUM PERCHLORATE
     Indication: PRODUCT USED FOR UNKNOWN INDICATION
     Route: 065

REACTIONS (2)
  - Fatigue [Recovered/Resolved]
  - Cholangitis [Recovered/Resolved]

NARRATIVE: CASE EVENT DATE: 20161205
